FAERS Safety Report 8456352-9 (Version None)
Quarter: 2012Q2

REPORT INFORMATION
  Report Type: 
  Country: None (occurrence: None)
  Receive Date: 20120621
  Receipt Date: 20120618
  Transmission Date: 20120825
  Serious: Yes (Hospitalization)
  Sender: FDA-Public Use
  Company Number: FR-GLAXOSMITHKLINE-B0772513A

PATIENT
  Sex: Female

DRUGS (8)
  1. DIANE [Concomitant]
     Route: 048
  2. ACETAMINOPHEN [Concomitant]
     Indication: PAIN
     Dosage: 1000MG AS REQUIRED
     Route: 048
  3. ESTAZOLAM [Suspect]
     Indication: PRODUCT USED FOR UNKNOWN INDICATION
     Dosage: 2MG PER DAY
     Route: 048
     Dates: start: 20111014
  4. GADOLINIUM [Concomitant]
     Indication: NUCLEAR MAGNETIC RESONANCE IMAGING
     Route: 065
     Dates: start: 20111029, end: 20111029
  5. LAMICTAL [Suspect]
     Indication: PRODUCT USED FOR UNKNOWN INDICATION
     Dosage: 200MG PER DAY
     Route: 048
     Dates: start: 20111015, end: 20111108
  6. RELPAX [Suspect]
     Indication: MIGRAINE
     Route: 048
     Dates: start: 20110909, end: 20111015
  7. ZOLMITRIPTAN [Suspect]
     Indication: MIGRAINE
     Dosage: 2.5MG AS REQUIRED
     Route: 048
     Dates: start: 20111015
  8. PANTOPRAZOLE [Concomitant]
     Route: 048

REACTIONS (5)
  - DISSEMINATED INTRAVASCULAR COAGULATION [None]
  - HISTIOCYTOSIS HAEMATOPHAGIC [None]
  - DRUG RASH WITH EOSINOPHILIA AND SYSTEMIC SYMPTOMS [None]
  - HEPATOCELLULAR INJURY [None]
  - ASTHENIA [None]
